FAERS Safety Report 7260969-7 (Version None)
Quarter: 2011Q1

REPORT INFORMATION
  Report Type: 
  Country: None (occurrence: None)
  Receive Date: 20110130
  Receipt Date: 20101228
  Transmission Date: 20110831
  Serious: No
  Sender: FDA-Public Use
  Company Number: US-ABBOTT-10P-163-0694023-00

PATIENT
  Age: 51 Year
  Sex: Male

DRUGS (2)
  1. CHOLESTEROL MEDICINE UNKNOWN [Concomitant]
     Indication: BLOOD CHOLESTEROL
  2. HUMIRA [Suspect]
     Indication: PSORIASIS
     Dates: start: 20101111

REACTIONS (2)
  - PRURITUS [None]
  - RASH PAPULAR [None]
